FAERS Safety Report 6992024-5 (Version None)
Quarter: 2010Q3

REPORT INFORMATION
  Report Type: 
  Country: None (occurrence: None)
  Receive Date: 20100917
  Receipt Date: 20100907
  Transmission Date: 20110219
  Serious: Yes (Other)
  Sender: FDA-Public Use
  Company Number: JP-PFIZER INC-2010059603

PATIENT
  Age: 46 Year
  Sex: Female
  Weight: 59.5 kg

DRUGS (9)
  1. CHAMPIX [Suspect]
     Indication: NICOTINE DEPENDENCE
     Dosage: 0.5 MG, 1X/DAY
     Route: 048
     Dates: start: 20100226, end: 20100228
  2. CHAMPIX [Suspect]
     Dosage: 0.5 MG, 2X/DAY
     Route: 048
     Dates: start: 20100301, end: 20100304
  3. CHAMPIX [Suspect]
     Dosage: 1 MG, 2X/DAY
     Dates: start: 20100305, end: 20100305
  4. LIMAS [Concomitant]
     Dosage: UNK
     Route: 048
  5. SOLANAX [Concomitant]
     Dosage: UNK
     Route: 048
  6. DEPAS [Concomitant]
     Dosage: UNK
     Route: 048
  7. LENDORMIN [Concomitant]
     Dosage: UNK
     Route: 048
  8. ROHYPNOL [Concomitant]
     Dosage: UNK
     Route: 048
  9. AMOXAN [Concomitant]
     Dosage: UNK
     Route: 048

REACTIONS (7)
  - ABNORMAL BEHAVIOUR [None]
  - AGGRESSION [None]
  - DEPRESSION SUICIDAL [None]
  - EUPHORIC MOOD [None]
  - STRESS [None]
  - SUICIDE ATTEMPT [None]
  - THINKING ABNORMAL [None]
